FAERS Safety Report 5837992-X (Version None)
Quarter: 2008Q3

REPORT INFORMATION
  Report Type: 
  Country: None (occurrence: None)
  Receive Date: 20080808
  Receipt Date: 20080130
  Transmission Date: 20090109
  Serious: No
  Sender: FDA-Public Use
  Company Number: A0706365A

PATIENT
  Sex: Female

DRUGS (2)
  1. PAROXETINE HCL [Suspect]
     Route: 048
     Dates: start: 20070101, end: 20070101
  2. PAXIL [Suspect]
     Dosage: 20MG PER DAY
     Route: 048
     Dates: start: 20060101

REACTIONS (2)
  - DRUG INEFFECTIVE [None]
  - HOT FLUSH [None]
